FAERS Safety Report 10051008 (Version 1)
Quarter: 2014Q1

REPORT INFORMATION
  Report Type: Spontaneous
  Country: ES (occurrence: None)
  Receive Date: 20140328
  Receipt Date: 20140328
  Transmission Date: 20141002
  Serious: Yes (Hospitalization)
  Sender: FDA-Public Use
  Company Number: AUR-APL-2014-03668

PATIENT
  Age: 88 Year
  Sex: Female

DRUGS (9)
  1. CARVEDILOL [Suspect]
     Indication: CARDIAC FAILURE CONGESTIVE
     Dosage: 1 IN 1 D
     Route: 048
     Dates: start: 20130503
  2. ALDACTONE [Suspect]
     Indication: HYPERTROPHIC CARDIOMYOPATHY
     Dosage: 1 IN 1 D
     Route: 048
     Dates: start: 20130430, end: 20130513
  3. MIRTAZAPINE [Concomitant]
  4. DIGOXINE [Concomitant]
  5. FUROSEMIDE [Concomitant]
  6. DEXNON (LEVOTHYROXINE SODIUM) [Concomitant]
  7. ORFIDAL (LORAZEPAM) [Concomitant]
  8. SINEMET-PLUS (SINEMET) [Concomitant]
  9. SINTROM (ACENOCOUMAROL) [Concomitant]

REACTIONS (2)
  - Hyperkalaemia [None]
  - Drug interaction [None]
